FAERS Safety Report 8059865-7 (Version None)
Quarter: 2012Q1

REPORT INFORMATION
  Report Type: 
  Country: None (occurrence: None)
  Receive Date: 20120120
  Receipt Date: 20120113
  Transmission Date: 20120608
  Serious: Yes (Other)
  Sender: FDA-Public Use
  Company Number: US-JNJFOC-20120106642

PATIENT
  Sex: Female

DRUGS (16)
  1. LITHIUM CARBONATE [Suspect]
     Indication: BIPOLAR DISORDER
     Route: 048
  2. PROMETRIUM [Suspect]
     Indication: PREGNANCY
     Route: 048
  3. CEPHALEXIN [Suspect]
     Indication: URINARY TRACT INFECTION
     Route: 048
  4. LEXAPRO [Suspect]
     Indication: BIPOLAR DISORDER
     Route: 048
  5. BETAMETHASONE [Suspect]
     Indication: PRODUCT USED FOR UNKNOWN INDICATION
     Route: 065
  6. NATELLE [Concomitant]
     Indication: PREGNANCY
     Route: 048
  7. TOPAMAX [Suspect]
     Indication: BIPOLAR DISORDER
     Route: 048
  8. ZOVIA 1/35E-21 [Suspect]
     Indication: CONTRACEPTION
     Route: 048
  9. SULFAMETHOXAZOLE AND TRIMETHOPRIM [Suspect]
     Indication: URINARY TRACT INFECTION
     Route: 048
  10. BUSPIRONE HCL [Suspect]
     Indication: SMOKING CESSATION THERAPY
     Route: 048
  11. ZITHROMAX [Suspect]
     Indication: PRODUCT USED FOR UNKNOWN INDICATION
     Route: 065
  12. AMPICILLIN [Suspect]
     Indication: PRODUCT USED FOR UNKNOWN INDICATION
     Route: 065
  13. CLINDAMYCIN [Suspect]
     Indication: BACTERIAL INFECTION
     Route: 067
  14. TERBUTALINE [Suspect]
     Indication: PREMATURE LABOUR
     Route: 048
  15. NIFEDIPINE [Suspect]
     Indication: PRODUCT USED FOR UNKNOWN INDICATION
     Route: 065
  16. NITROFURANTOIN [Suspect]
     Indication: URINARY TRACT INFECTION
     Route: 048

REACTIONS (2)
  - MATERNAL EXPOSURE DURING PREGNANCY [None]
  - ABORTION SPONTANEOUS [None]
